FAERS Safety Report 21183605 (Version 1)
Quarter: 2022Q3

REPORT INFORMATION
  Report Type: Spontaneous
  Country: US (occurrence: US)
  Receive Date: 20220808
  Receipt Date: 20220808
  Transmission Date: 20221027
  Serious: No
  Sender: FDA-Public Use
  Company Number: US-BAUSCH-BL-2022-019426

PATIENT
  Age: 83 Year
  Sex: Female
  Weight: 53.118 kg

DRUGS (1)
  1. LATANOPROST [Suspect]
     Active Substance: LATANOPROST
     Indication: Glaucoma
     Route: 047

REACTIONS (4)
  - Eye swelling [Unknown]
  - Visual impairment [Unknown]
  - Chalazion [Unknown]
  - Off label use [Unknown]
